FAERS Safety Report 8055804-3 (Version None)
Quarter: 2011Q4

REPORT INFORMATION
  Report Type: 
  Country: None (occurrence: None)
  Receive Date: 20111219
  Receipt Date: 20101231
  Transmission Date: 20120403
  Serious: Yes (Other)
  Sender: FDA-Public Use
  Company Number: ENTC2010-0421

PATIENT
  Age: 63 Year
  Sex: Female

DRUGS (2)
  1. STALEVO 100 [Suspect]
     Indication: PARKINSON'S DISEASE
     Dosage: STRENGTH: 50 MG, 2 IN 1 D, ORAL, 200/50/200 MG, ORAL
     Route: 048
     Dates: start: 20100605, end: 20100615
  2. STALEVO 100 [Suspect]
     Indication: PARKINSON'S DISEASE
     Dosage: STRENGTH: 50 MG, 2 IN 1 D, ORAL, 200/50/200 MG, ORAL
     Route: 048

REACTIONS (2)
  - DIZZINESS [None]
  - TREMOR [None]
